FAERS Safety Report 9471036 (Version 1)
Quarter: 2013Q3

REPORT INFORMATION
  Report Type: Spontaneous
  Country: US (occurrence: US)
  Receive Date: 20130822
  Receipt Date: 20130822
  Transmission Date: 20140515
  Serious: No
  Sender: FDA-Public Use
  Company Number: US-009507513-1308USA010212

PATIENT
  Sex: Female

DRUGS (3)
  1. MIRALAX [Suspect]
     Indication: VOLVULUS
     Dosage: UNK, UNKNOWN
     Route: 048
     Dates: start: 20130802
  2. MIRALAX [Suspect]
     Indication: CONSTIPATION
  3. MIRALAX [Suspect]
     Indication: MEDICAL OBSERVATION

REACTIONS (4)
  - Abdominal pain upper [Unknown]
  - Pain [Not Recovered/Not Resolved]
  - Malaise [Unknown]
  - Product taste abnormal [Unknown]
